FAERS Safety Report 6016191-5 (Version None)
Quarter: 2008Q4

REPORT INFORMATION
  Report Type: 
  Country: None (occurrence: None)
  Receive Date: 20081222
  Receipt Date: 20081215
  Transmission Date: 20090506
  Serious: Yes (Life-Threatening)
  Sender: FDA-Public Use
  Company Number: JP-ASTRAZENECA-2008AP06835

PATIENT
  Age: 63 Year
  Sex: Male
  Weight: 66 kg

DRUGS (7)
  1. XYLOCAINE [Suspect]
     Indication: LOCAL ANAESTHESIA
     Route: 061
     Dates: start: 20080829, end: 20080829
  2. DIPRIVAN INJECTION - KIT [Suspect]
     Indication: GENERAL ANAESTHESIA
     Dosage: INDUCED WITH 3 MICROGRAM/ML AND MAINTAINED WITH 1.5 MICROGRAM/ML.
     Route: 042
     Dates: start: 20080829, end: 20080829
  3. ULTIVA [Suspect]
     Dosage: DOSE UNKNOWN
     Route: 042
     Dates: start: 20080829, end: 20080829
  4. PENTCILLIN [Suspect]
     Route: 042
     Dates: start: 20080829, end: 20080829
  5. MUSCULAX [Suspect]
     Route: 042
     Dates: start: 20080829, end: 20080829
  6. SOLULACT [Concomitant]
     Route: 042
     Dates: start: 20080829, end: 20080829
  7. FENTANYL-100 [Concomitant]
     Dosage: DOSE UNKNOWN
     Route: 042
     Dates: start: 20080829, end: 20080829

REACTIONS (2)
  - BLOOD PRESSURE DECREASED [None]
  - CARDIAC OUTPUT DECREASED [None]
